FAERS Safety Report 8082890-7 (Version None)
Quarter: 2012Q1

REPORT INFORMATION
  Report Type: 
  Country: None (occurrence: None)
  Receive Date: 20120127
  Receipt Date: 20110126
  Transmission Date: 20120608
  Serious: No
  Sender: FDA-Public Use
  Company Number: US-ABBOTT-11P-163-0700610-00

PATIENT
  Age: 58 Year
  Sex: Female

DRUGS (11)
  1. XANAX [Concomitant]
     Indication: INSOMNIA
     Dosage: AT NIGHT
  2. TIZANIDINE HYDROCHLORIDE [Concomitant]
     Indication: MUSCLE SPASMS
     Dosage: 4 MG QID AS NEEDED
  3. DILTIAZEM HCL [Concomitant]
     Indication: BLOOD PRESSURE INCREASED
  4. OXYCODONE HCL [Concomitant]
     Indication: PAIN
     Dosage: 10/325 1 QID AS NEEDED
  5. CELEBREX [Concomitant]
     Indication: RHEUMATOID ARTHRITIS
  6. METHOTREXATE [Concomitant]
     Indication: RHEUMATOID ARTHRITIS
  7. LEVOXYL [Concomitant]
     Indication: HYPOTHYROIDISM
  8. HYDROCHLOROTHIAZIDE [Concomitant]
     Indication: FLUID RETENTION
     Dosage: 1 OR 2 TABLES AS NEEDED
  9. HUMIRA [Suspect]
     Indication: RHEUMATOID ARTHRITIS
     Dates: start: 20090401
  10. FOLIC ACID [Concomitant]
     Indication: HEPATITIS C
  11. LOVZA [Concomitant]
     Indication: SUPPLEMENTATION THERAPY

REACTIONS (3)
  - INJECTION SITE PAIN [None]
  - SYNOVIAL CYST [None]
  - ARTHRITIS [None]
